FAERS Safety Report 5499400-0 (Version None)
Quarter: 2007Q4

REPORT INFORMATION
  Report Type: 
  Country: None (occurrence: None)
  Receive Date: 20071026
  Receipt Date: 20071023
  Transmission Date: 20080405
  Serious: Yes (Hospitalization)
  Sender: FDA-Public Use
  Company Number: B0487473A

PATIENT
  Age: 77 Year
  Sex: Female
  Weight: 56 kg

DRUGS (5)
  1. VALTREX [Suspect]
     Indication: HERPES ZOSTER
     Dosage: 1000MG THREE TIMES PER DAY
     Route: 048
     Dates: start: 20070903, end: 20070907
  2. CALSLOT [Concomitant]
     Indication: HYPERTENSION
     Dosage: 10MG PER DAY
     Route: 048
     Dates: start: 20070903, end: 20070907
  3. CRESTOR [Concomitant]
     Route: 048
     Dates: start: 20070903, end: 20070907
  4. BUFFERIN [Concomitant]
     Route: 048
  5. ASPIRIN [Concomitant]
     Dosage: 100MG PER DAY
     Route: 048
     Dates: start: 20070903, end: 20070907

REACTIONS (6)
  - FEELING ABNORMAL [None]
  - GENERALISED OEDEMA [None]
  - NAUSEA [None]
  - RENAL FAILURE ACUTE [None]
  - SWELLING FACE [None]
  - VOMITING [None]
